FAERS Safety Report 8052392-2 (Version None)
Quarter: 2012Q1

REPORT INFORMATION
  Report Type: 
  Country: None (occurrence: None)
  Receive Date: 20120117
  Receipt Date: 20120117
  Transmission Date: 20120608
  Serious: Yes (Other)
  Sender: FDA-Public Use
  Company Number: None

PATIENT
  Sex: Female
  Weight: 76.2043 kg

DRUGS (1)
  1. NIX [Suspect]
     Indication: LICE INFESTATION
     Dosage: NIX 5% CREAM APPLIED TO THE ROOTS AND SCALP FOR 1 HOUR EVERY 5 DAYS FOR 4 TREATMENTS
     Dates: start: 20120105, end: 20120115

REACTIONS (7)
  - HEADACHE [None]
  - ENDOCRINE DISORDER [None]
  - NAUSEA [None]
  - SKIN ODOUR ABNORMAL [None]
  - FATIGUE [None]
  - TOXICITY TO VARIOUS AGENTS [None]
  - ABDOMINAL PAIN [None]
